FAERS Safety Report 8742356 (Version 5)
Quarter: 2013Q2

REPORT INFORMATION
  Report Type: Spontaneous
  Country: US (occurrence: US)
  Receive Date: 20120824
  Receipt Date: 20130419
  Transmission Date: 20140414
  Serious: Yes (Hospitalization)
  Sender: FDA-Public Use
  Company Number: US-B.I. PHARMACEUTICALS,INC./RIDGEFIELD-2012-BP-19928BP

PATIENT
  Age: 75 Year
  Sex: Male
  Weight: 97.52 kg

DRUGS (17)
  1. PRADAXA [Suspect]
     Indication: ANTICOAGULANT THERAPY
     Dosage: 300 MG
     Dates: start: 20110214, end: 20110823
  2. PRADAXA [Suspect]
     Indication: ATRIAL FIBRILLATION
  3. ASMANEX [Concomitant]
     Dosage: 2 PUF
     Dates: start: 1985
  4. PRO AIR INHALER [Concomitant]
     Dosage: 4 PUF
     Route: 055
     Dates: start: 1985
  5. FUROSEMIDE [Concomitant]
     Dosage: 20 MG
     Dates: start: 2005
  6. LOSARTAN [Concomitant]
     Dosage: 100 MG
     Dates: start: 2005
  7. VERAPAMIL ER [Concomitant]
     Dosage: 240 MG
     Dates: start: 2005
  8. DIGOXIN [Concomitant]
     Dosage: 0.125 MG
     Dates: start: 2005
  9. METOPROLOL ER [Concomitant]
     Dosage: 50 MG
     Dates: start: 2005
  10. SINGULAIR [Concomitant]
     Dosage: 10 MG
     Dates: start: 1985
  11. AMOX/CLAVULA [Concomitant]
     Dates: start: 2008, end: 2012
  12. PREDNISONE [Concomitant]
     Dates: start: 2010
  13. LORAZEPAM [Concomitant]
     Dates: start: 2010
  14. PREVIDENT [Concomitant]
     Dates: start: 2000, end: 2012
  15. SULINDAC [Concomitant]
     Dosage: 400 MG
  16. SIMVASTATIN [Concomitant]
     Dosage: 40 MG
  17. CALCIUM + VITAMIN D [Concomitant]

REACTIONS (1)
  - Gastrointestinal haemorrhage [Unknown]
